FAERS Safety Report 18113728 (Version 7)
Quarter: 2020Q4

REPORT INFORMATION
  Report Type: Report from Study
  Country: CZ (occurrence: CZ)
  Receive Date: 20200805
  Receipt Date: 20201209
  Transmission Date: 20210113
  Serious: Yes (Hospitalization)
  Sender: FDA-Public Use
  Company Number: NVSC2020CZ040007

PATIENT
  Age: 48 Year
  Sex: Female
  Weight: 62.5 kg

DRUGS (31)
  1. ACETYLSALICYLIC ACID [Concomitant]
     Active Substance: ASPIRIN
     Indication: THROMBOSIS PROPHYLAXIS
     Dosage: UNK
     Route: 065
     Dates: start: 20190926, end: 20200211
  2. CHLORHEXIDINE [Concomitant]
     Active Substance: CHLORHEXIDINE
     Indication: GINGIVITIS
     Dosage: UNK
     Route: 065
     Dates: start: 20200115, end: 20200129
  3. METOPROLOL. [Concomitant]
     Active Substance: METOPROLOL
     Indication: HYPERTENSION
     Dosage: UNK
     Route: 065
     Dates: start: 20200116, end: 20200212
  4. METOPROLOL. [Concomitant]
     Active Substance: METOPROLOL
     Dosage: UNK
     Route: 065
     Dates: start: 20200213, end: 20200229
  5. CETRIZIN [Concomitant]
     Indication: DYSPNOEA
     Dosage: UNK
     Route: 065
     Dates: start: 20200129, end: 20200212
  6. NYSTATINUM [Concomitant]
     Active Substance: NYSTATIN
     Indication: APHTHOUS ULCER
     Dosage: UNK
     Route: 065
     Dates: start: 20200110, end: 20200212
  7. ENOXAPARIN [Concomitant]
     Active Substance: ENOXAPARIN
     Indication: PROPHYLAXIS
     Dosage: UNK
     Route: 065
     Dates: start: 20200212, end: 20200216
  8. CINACALCETUM [Concomitant]
     Indication: HYPERPARATHYROIDISM
     Dosage: UNK
     Route: 065
     Dates: start: 20190329, end: 20200217
  9. MYCOPHENOLATE MOFETIL. [Suspect]
     Active Substance: MYCOPHENOLATE MOFETIL
     Dosage: 250 MG, BID
     Route: 048
     Dates: start: 20200115, end: 20200211
  10. ACETYLCYSTEINUM [Concomitant]
     Indication: BRONCHITIS
     Dosage: UNK
     Route: 065
     Dates: start: 20200107, end: 20200212
  11. LACTOBACILLUS [Concomitant]
     Active Substance: LACTOBACILLUS ACIDOPHILUS
     Indication: PROPHYLAXIS
     Dosage: UNK
     Route: 065
     Dates: start: 20200214, end: 20200215
  12. LACTOBACILLUS [Concomitant]
     Active Substance: LACTOBACILLUS ACIDOPHILUS
     Indication: PROPHYLAXIS
     Dosage: UNK
     Route: 065
     Dates: start: 20200217, end: 20200218
  13. ESOMEPRAZOLUM [Concomitant]
     Indication: DYSPEPSIA
     Dosage: UNK
     Route: 065
     Dates: start: 20200115, end: 20200211
  14. ISCALIMAB [Suspect]
     Active Substance: ISCALIMAB
     Indication: RENAL TRANSPLANT
     Dosage: 3 ML, Q2W
     Route: 058
     Dates: start: 20190911, end: 20200129
  15. MYCOPHENOLATE MOFETIL. [Suspect]
     Active Substance: MYCOPHENOLATE MOFETIL
     Dosage: 500 MG, BID
     Route: 048
     Dates: start: 20200104
  16. PREDNISONUM [Concomitant]
     Active Substance: PREDNISONE
     Indication: PROPHYLAXIS AGAINST TRANSPLANT REJECTION
     Dosage: UNK
     Route: 065
     Dates: start: 20190911, end: 20200211
  17. PANTOPRAZOLUM [Concomitant]
     Active Substance: PANTOPRAZOLE
     Indication: ULCER
     Dosage: UNK
     Route: 065
     Dates: start: 20200212, end: 20200213
  18. MYCOPHENOLATE MOFETIL. [Suspect]
     Active Substance: MYCOPHENOLATE MOFETIL
     Indication: RENAL TRANSPLANT
     Dosage: 750 MG, BID
     Route: 048
     Dates: start: 20190911
  19. OMEPRAZOLE. [Concomitant]
     Active Substance: OMEPRAZOLE
     Indication: PROPHYLAXIS
     Dosage: UNK
     Route: 065
     Dates: start: 20200115
  20. ROSUVASTATINUM [Concomitant]
     Active Substance: ROSUVASTATIN
     Indication: LIVER FUNCTION TEST INCREASED
     Dosage: UNK
     Route: 065
     Dates: start: 20191204, end: 20200211
  21. ITOPRIDE [Concomitant]
     Active Substance: ITOPRIDE
     Indication: DYSPEPSIA
     Dosage: UNK
     Route: 065
     Dates: start: 20200116, end: 20200212
  22. EZETIMIBUM [Concomitant]
     Indication: DYSLIPIDAEMIA
     Dosage: UNK
     Route: 065
     Dates: start: 20190531, end: 20200212
  23. URSODEOXYCHOLIC ACID [Concomitant]
     Active Substance: URSODIOL
     Indication: DYSLIPIDAEMIA
     Dosage: UNK
     Route: 065
     Dates: start: 20190531, end: 20200212
  24. MYCOPHENOLATE MOFETIL. [Suspect]
     Active Substance: MYCOPHENOLATE MOFETIL
     Dosage: 250 MG, BID
     Route: 048
     Dates: start: 20190911, end: 20200211
  25. TACROLIMUS. [Suspect]
     Active Substance: TACROLIMUS
     Indication: RENAL TRANSPLANT
     Dosage: 1.5 MG, QD
     Route: 048
     Dates: start: 20190911
  26. METOPROLOL. [Concomitant]
     Active Substance: METOPROLOL
     Dosage: UNK
     Route: 065
     Dates: start: 20200213, end: 20200301
  27. CIPROFLOXACIN. [Concomitant]
     Active Substance: CIPROFLOXACIN
     Indication: RESPIRATORY TRACT INFECTION
     Dosage: UNK
     Route: 065
     Dates: start: 20200129, end: 20200309
  28. CIPROFLOXACIN. [Concomitant]
     Active Substance: CIPROFLOXACIN
     Indication: LEUKOCYTOSIS
  29. BUTAMIRATE [Concomitant]
     Active Substance: BUTAMIRATE
     Indication: DYSPNOEA
     Dosage: UNK
     Route: 065
     Dates: start: 20200129, end: 20200212
  30. PREDNISONUM [Concomitant]
     Active Substance: PREDNISONE
     Dosage: UNK
     Route: 065
     Dates: start: 20190329, end: 20200211
  31. ESOMEPRAZOLUM [Concomitant]
     Indication: PROPHYLAXIS AGAINST GASTROINTESTINAL ULCER
     Dosage: UNK
     Route: 065
     Dates: start: 20200213, end: 20200215

REACTIONS (1)
  - Pneumocystis jirovecii pneumonia [Recovered/Resolved]

NARRATIVE: CASE EVENT DATE: 20200212
